FAERS Safety Report 21890988 (Version 3)
Quarter: 2023Q1

REPORT INFORMATION
  Report Type: Report from Study
  Country: US (occurrence: US)
  Receive Date: 20230120
  Receipt Date: 20230202
  Transmission Date: 20230417
  Serious: Yes (Other)
  Sender: FDA-Public Use
  Company Number: US-UCBSA-2023002640

PATIENT
  Age: 71 Year
  Sex: Female

DRUGS (1)
  1. ROTIGOTINE [Suspect]
     Active Substance: ROTIGOTINE
     Indication: Restless legs syndrome
     Dosage: 8 MILLIGRAM, ONCE DAILY (QD)
     Route: 062

REACTIONS (5)
  - Appendicectomy [Unknown]
  - Colonoscopy [Unknown]
  - Dermatitis contact [Not Recovered/Not Resolved]
  - Product adhesion issue [Unknown]
  - Overdose [Unknown]

NARRATIVE: CASE EVENT DATE: 20220201
